FAERS Safety Report 12790809 (Version 1)
Quarter: 2016Q3

REPORT INFORMATION
  Report Type: Report from Study
  Country: US (occurrence: US)
  Receive Date: 20160929
  Receipt Date: 20160929
  Transmission Date: 20161109
  Serious: Yes (Other)
  Sender: FDA-Public Use
  Company Number: US-ROCHE-1835595

PATIENT
  Age: 73 Year
  Sex: Female
  Weight: 83.6 kg

DRUGS (19)
  1. BEVACIZUMAB [Suspect]
     Active Substance: BEVACIZUMAB
     Dosage: COURSE 10
     Route: 042
     Dates: start: 20111114
  2. BEVACIZUMAB [Suspect]
     Active Substance: BEVACIZUMAB
     Dosage: COURSE 5
     Route: 042
     Dates: start: 20110725
  3. BEVACIZUMAB [Suspect]
     Active Substance: BEVACIZUMAB
     Dosage: COURSE 9
     Route: 042
     Dates: start: 20111024
  4. IXABEPILONE [Suspect]
     Active Substance: IXABEPILONE
     Indication: PAPILLARY SEROUS ENDOMETRIAL CARCINOMA
     Dosage: OVER 1 HOUR ?COURSE 1
     Route: 042
     Dates: start: 20110418
  5. IXABEPILONE [Suspect]
     Active Substance: IXABEPILONE
     Dosage: COURSE 2
     Route: 042
     Dates: start: 20110509
  6. BEVACIZUMAB [Suspect]
     Active Substance: BEVACIZUMAB
     Dosage: COURSE 8
     Route: 042
     Dates: start: 20111003
  7. IXABEPILONE [Suspect]
     Active Substance: IXABEPILONE
     Dosage: COURSE 10
     Route: 042
     Dates: start: 20111114
  8. BEVACIZUMAB [Suspect]
     Active Substance: BEVACIZUMAB
     Dosage: COURSE 2
     Route: 042
     Dates: start: 20110509
  9. BEVACIZUMAB [Suspect]
     Active Substance: BEVACIZUMAB
     Dosage: COURSE 4
     Route: 042
     Dates: start: 20110627
  10. IXABEPILONE [Suspect]
     Active Substance: IXABEPILONE
     Dosage: COURSE 3
     Route: 042
     Dates: start: 20110601
  11. IXABEPILONE [Suspect]
     Active Substance: IXABEPILONE
     Dosage: COURSE 4
     Route: 042
     Dates: start: 20110627
  12. IXABEPILONE [Suspect]
     Active Substance: IXABEPILONE
     Dosage: COURSE 12
     Route: 042
     Dates: start: 20111228
  13. CARBOPLATIN. [Suspect]
     Active Substance: CARBOPLATIN
     Indication: PAPILLARY SEROUS ENDOMETRIAL CARCINOMA
     Dosage: OVER 30 MINUTES
     Route: 042
  14. IXABEPILONE [Suspect]
     Active Substance: IXABEPILONE
     Dosage: COURSE 9
     Route: 042
     Dates: start: 20111024
  15. BEVACIZUMAB [Suspect]
     Active Substance: BEVACIZUMAB
     Indication: PAPILLARY SEROUS ENDOMETRIAL CARCINOMA
     Dosage: OVER 30-90 MINUTES ON DAY 1?COURSE 1
     Route: 042
     Dates: start: 20110418
  16. BEVACIZUMAB [Suspect]
     Active Substance: BEVACIZUMAB
     Dosage: COURSE 3
     Route: 042
     Dates: start: 20110601
  17. BEVACIZUMAB [Suspect]
     Active Substance: BEVACIZUMAB
     Dosage: COURSE 12
     Route: 042
     Dates: start: 20111228
  18. IXABEPILONE [Suspect]
     Active Substance: IXABEPILONE
     Dosage: COURSE 5
     Route: 042
     Dates: start: 20110725
  19. IXABEPILONE [Suspect]
     Active Substance: IXABEPILONE
     Dosage: COURSE 8
     Route: 042
     Dates: start: 20111003

REACTIONS (4)
  - Urinary tract obstruction [Unknown]
  - White blood cell count decreased [Unknown]
  - Ascites [Unknown]
  - Neutrophil count decreased [Unknown]
